FAERS Safety Report 6130535-5 (Version None)
Quarter: 2009Q1

REPORT INFORMATION
  Report Type: 
  Country: None (occurrence: None)
  Receive Date: 20090323
  Receipt Date: 20090306
  Transmission Date: 20090719
  Serious: Yes (Other)
  Sender: FDA-Public Use
  Company Number: 8043887

PATIENT
  Age: 72 Year
  Sex: Male

DRUGS (3)
  1. HYDROCODONE BITARTRATE AND ACETAMINOPHEN [Suspect]
     Indication: BACK PAIN
  2. HYDROCODONE BITARTRATE AND ACETAMINOPHEN [Suspect]
     Indication: PROCEDURAL PAIN
  3. WARFARIN SODIUM [Concomitant]

REACTIONS (3)
  - ATRIAL SEPTAL DEFECT [None]
  - CEREBRAL INFARCTION [None]
  - ENCEPHALOPATHY [None]
